FAERS Safety Report 24860695 (Version 1)
Quarter: 2025Q1

REPORT INFORMATION
  Report Type: Spontaneous
  Country: US (occurrence: US)
  Receive Date: 20250120
  Receipt Date: 20250120
  Transmission Date: 20250409
  Serious: Yes (Other)
  Sender: CHATTEM
  Company Number: US-OPELLA-2025OHG001256

PATIENT
  Sex: Female

DRUGS (1)
  1. ICY HOT WITH LIDOCAINE PAIN RELIEVING [Suspect]
     Active Substance: LIDOCAINE\MENTHOL
     Indication: Product used for unknown indication
     Route: 065

REACTIONS (3)
  - Burns third degree [Recovering/Resolving]
  - Rash [Recovering/Resolving]
  - Administration site nerve damage [Recovering/Resolving]

NARRATIVE: CASE EVENT DATE: 20241201
